FAERS Safety Report 4334270-5 (Version None)
Quarter: 2004Q2

REPORT INFORMATION
  Report Type: 
  Country: None (occurrence: None)
  Receive Date: 20040405
  Receipt Date: 20040324
  Transmission Date: 20050107
  Serious: Yes (Death)
  Sender: FDA-Public Use
  Company Number: 163-20785-04010648

PATIENT
  Age: 68 Year
  Sex: Female

DRUGS (13)
  1. THALOMID [Suspect]
     Indication: MULTIPLE MYELOMA
     Dosage: 200 MG, DAILY, ORAL
     Route: 048
     Dates: start: 20030602, end: 20030923
  2. AREDIA [Concomitant]
  3. MAXZIDE [Concomitant]
  4. GLUCOPHAGE [Concomitant]
  5. GLUCOTROL [Concomitant]
  6. LANTUS INSULIN (INSULIN GLARGINE) [Concomitant]
  7. XANAX [Concomitant]
  8. ZYLOPRIM [Concomitant]
  9. PEPCID (FAMOTIDINE) TABLETS [Concomitant]
  10. TORECAN [Concomitant]
  11. FLEXERIL [Concomitant]
  12. DURAGESIC [Concomitant]
  13. OXYCODONE HCL [Concomitant]

REACTIONS (7)
  - BLOOD GLUCOSE DECREASED [None]
  - BLOOD PRESSURE INCREASED [None]
  - INSOMNIA [None]
  - MARKEDLY REDUCED DIETARY INTAKE [None]
  - SLEEP APNOEA SYNDROME [None]
  - TREATMENT NONCOMPLIANCE [None]
  - TREMOR [None]
